FAERS Safety Report 11555179 (Version 2)
Quarter: 2015Q3

REPORT INFORMATION
  Report Type: Spontaneous
  Country: JP (occurrence: JP)
  Receive Date: 20150925
  Receipt Date: 20150928
  Transmission Date: 20151125
  Serious: Yes (Other)
  Sender: FDA-Public Use
  Company Number: JP-PFIZER INC-2015318070

PATIENT
  Sex: Female

DRUGS (1)
  1. LYRICA [Suspect]
     Active Substance: PREGABALIN
     Indication: NEURALGIA
     Dosage: UNK
     Route: 048
     Dates: start: 2014

REACTIONS (8)
  - Blood bilirubin increased [Unknown]
  - Gallbladder oedema [Unknown]
  - Hepatomegaly [Unknown]
  - Drug ineffective [Unknown]
  - Jaundice [Unknown]
  - Hepatic function abnormal [Unknown]
  - Goitre [Unknown]
  - Oedema peripheral [Unknown]
